FAERS Safety Report 22752094 (Version 2)
Quarter: 2025Q3

REPORT INFORMATION
  Report Type: Report from Study
  Country: EU (occurrence: EU)
  Receive Date: 20230726
  Receipt Date: 20250715
  Transmission Date: 20251020
  Serious: Yes (Other)
  Sender: PFIZER
  Company Number: EU-PFM-2023-04131

PATIENT
  Age: 81 Year
  Sex: Male
  Weight: 73 kg

DRUGS (15)
  1. ENCORAFENIB [Suspect]
     Active Substance: ENCORAFENIB
     Indication: Malignant melanoma
     Dosage: 450 MG, 1X/DAY
     Route: 048
     Dates: start: 20220506, end: 20240504
  2. ENCORAFENIB [Suspect]
     Active Substance: ENCORAFENIB
     Dosage: 450 MG, 1X/DAY
     Route: 048
     Dates: start: 20240512
  3. BINIMETINIB [Suspect]
     Active Substance: BINIMETINIB
     Indication: Malignant melanoma
     Dosage: EVERY 12 HOURS
     Route: 048
     Dates: start: 20220506, end: 20240504
  4. BINIMETINIB [Suspect]
     Active Substance: BINIMETINIB
     Dosage: EVERY 12 HOURS
     Route: 048
     Dates: start: 20240512
  5. LEVOTHYROXINE [Concomitant]
     Active Substance: LEVOTHYROXINE
  6. ATORVASTATIN [Concomitant]
     Active Substance: ATORVASTATIN
  7. RAMIPRIL [Concomitant]
     Active Substance: RAMIPRIL
  8. SOLARAZE [Concomitant]
     Active Substance: DICLOFENAC SODIUM
  9. ACTIKERALL [Concomitant]
     Dates: start: 20221130
  10. TORSEMIDE [Concomitant]
     Active Substance: TORSEMIDE
     Indication: Prophylaxis
     Dates: start: 20221121
  11. TAMSULOSIN [Concomitant]
     Active Substance: TAMSULOSIN
     Indication: Prophylaxis
     Dates: start: 20221121
  12. DEXPANTHENOL [Concomitant]
     Active Substance: DEXPANTHENOL
     Indication: Prophylaxis
     Dates: start: 20230105
  13. CHOLECALCIFEROL [Concomitant]
     Active Substance: CHOLECALCIFEROL
     Indication: Hypocalcaemia
     Dates: start: 20221121
  14. CALCIUM [Concomitant]
     Active Substance: CALCIUM
     Indication: Hypocalcaemia
     Dates: start: 20221121
  15. SODIUM CITRATE\SODIUM LAURYL SULFOACETATE\SORBITOL [Concomitant]
     Active Substance: SODIUM CITRATE\SODIUM LAURYL SULFOACETATE\SORBITOL
     Indication: Constipation
     Dates: start: 20230322

REACTIONS (2)
  - Chronic kidney disease [Not Recovered/Not Resolved]
  - Blood creatinine increased [Recovered/Resolved]

NARRATIVE: CASE EVENT DATE: 20230517
